FAERS Safety Report 9368902 (Version 1)
Quarter: 2013Q2

REPORT INFORMATION
  Report Type: Spontaneous
  Country: NL (occurrence: NL)
  Receive Date: 20130626
  Receipt Date: 20130626
  Transmission Date: 20140414
  Serious: Yes (Other)
  Sender: FDA-Public Use
  Company Number: NL-AMGEN-NLDSP2013044379

PATIENT
  Age: 53 Year
  Sex: Female

DRUGS (5)
  1. NEULASTA [Suspect]
     Indication: PRODUCT USED FOR UNKNOWN INDICATION
     Dosage: 6 MG, Q3WK
     Route: 058
     Dates: start: 20130320, end: 20130619
  2. APREPITANT [Concomitant]
     Dosage: UNK, (BEFORE/DURING/AFTER CHEMO)
  3. ONDANSETRON [Concomitant]
     Dosage: UNK
  4. METOCLOPRAMIDE [Concomitant]
     Dosage: UNK
  5. MOVICOLON [Concomitant]
     Dosage: 2 UNK, QD

REACTIONS (2)
  - Syncope [Unknown]
  - Dizziness [Unknown]
